FAERS Safety Report 15475028 (Version 2)
Quarter: 2018Q4

REPORT INFORMATION
  Report Type: Spontaneous
  Country: US (occurrence: US)
  Receive Date: 20181008
  Receipt Date: 20181207
  Transmission Date: 20190205
  Serious: No
  Sender: FDA-Public Use
  Company Number: US-TELIGENT, INC-IGIL20180571

PATIENT
  Age: 57 Year
  Sex: Female

DRUGS (3)
  1. CLOBETASOL PROPIONATE (EMOLLIENT) [Suspect]
     Active Substance: CLOBETASOL PROPIONATE
     Indication: RASH
  2. CLOBETASOL PROPIONATE (EMOLLIENT) [Suspect]
     Active Substance: CLOBETASOL PROPIONATE
     Indication: ERYTHEMA
     Dosage: UNKNOWN
     Route: 061
     Dates: start: 20180921, end: 20180926
  3. CLOBETASOL PROPIONATE (EMOLLIENT) [Suspect]
     Active Substance: CLOBETASOL PROPIONATE
     Indication: SKIN IRRITATION

REACTIONS (2)
  - Erythema [Not Recovered/Not Resolved]
  - Skin disorder [Not Recovered/Not Resolved]

NARRATIVE: CASE EVENT DATE: 20180926
